FAERS Safety Report 11126718 (Version 1)
Quarter: 2015Q2

REPORT INFORMATION
  Report Type: Report from Study
  Country: US (occurrence: US)
  Receive Date: 20150520
  Receipt Date: 20150520
  Transmission Date: 20150821
  Serious: Yes (Death, Hospitalization)
  Sender: FDA-Public Use
  Company Number: US-ACTELION-A-US2015-115984

PATIENT
  Age: 75 Year
  Sex: Male

DRUGS (3)
  1. MACITENTAN [Suspect]
     Active Substance: MACITENTAN
     Indication: PULMONARY HYPERTENSION
     Dosage: 10 MG, QD
     Route: 048
     Dates: start: 20140213
  2. TREPROSTINIL DIOLAMIN [Concomitant]
     Active Substance: TREPROSTINIL DIOLAMINE
  3. CIALIS [Concomitant]
     Active Substance: TADALAFIL

REACTIONS (3)
  - Dyspnoea [Unknown]
  - Pulmonary arterial hypertension [Unknown]
  - Death [Fatal]

NARRATIVE: CASE EVENT DATE: 20150426
